FAERS Safety Report 6789554-8 (Version None)
Quarter: 2010Q2

REPORT INFORMATION
  Report Type: 
  Country: None (occurrence: None)
  Receive Date: 20100624
  Receipt Date: 20100615
  Transmission Date: 20101027
  Serious: No
  Sender: FDA-Public Use
  Company Number: US-BIOGENIDEC-2010BI017280

PATIENT
  Age: 36 Year
  Sex: Female

DRUGS (2)
  1. TYSABRI [Suspect]
     Indication: MULTIPLE SCLEROSIS
     Route: 042
     Dates: start: 20100412
  2. BETA BLOCKER [NOS] [Concomitant]

REACTIONS (15)
  - COGNITIVE DISORDER [None]
  - COMPLEX REGIONAL PAIN SYNDROME [None]
  - FEELING ABNORMAL [None]
  - FOOT FRACTURE [None]
  - GOUT [None]
  - HEADACHE [None]
  - HYPOAESTHESIA [None]
  - OEDEMA [None]
  - OEDEMA PERIPHERAL [None]
  - OSTEOMYELITIS [None]
  - PAIN IN EXTREMITY [None]
  - PARAESTHESIA [None]
  - SENSATION OF HEAVINESS [None]
  - WEIGHT INCREASED [None]
  - WHITE BLOOD CELL COUNT INCREASED [None]
